FAERS Safety Report 9827319 (Version 2)
Quarter: 2014Q1

REPORT INFORMATION
  Report Type: Spontaneous
  Country: US (occurrence: US)
  Receive Date: 20140117
  Receipt Date: 20140219
  Transmission Date: 20141002
  Serious: Yes (Death, Hospitalization, Other)
  Sender: FDA-Public Use
  Company Number: US-PFIZER INC-2014012036

PATIENT
  Age: 88 Year
  Sex: Male
  Weight: 88.44 kg

DRUGS (12)
  1. CARDURA [Suspect]
     Indication: HYPERTENSION
     Dosage: 2 MG, 1X/DAY
     Route: 048
     Dates: end: 20140105
  2. XALATAN [Suspect]
     Indication: MACULAR DEGENERATION
     Dosage: UNKNOWN DOSE ONE DROP IN EACH EYE, 1X/DAY (AT BEDTIME)
     Route: 047
     Dates: end: 20140105
  3. DETROL LA [Suspect]
     Indication: URINARY TRACT DISORDER
     Dosage: 4 MG, 1X/DAY
     Route: 048
     Dates: end: 20140105
  4. LISINOPRIL [Concomitant]
     Indication: HYPERTENSION
     Dosage: 2.5 MG, 1X/DAY
  5. KLOR-CON [Concomitant]
     Indication: DIURETIC THERAPY
     Dosage: 20 MEQ, 1X/DAY
     Route: 048
  6. LASIX [Concomitant]
     Indication: HYPERTENSION
     Dosage: 100 MG (60MG ONCE IN MORNING AND 40MG ONCE IN AFTERNOON), UNK
  7. ZOCOR [Concomitant]
     Dosage: 10 MG, 1X/DAY
  8. ASPIRIN [Concomitant]
     Dosage: 325 MG, 1X/DAY
  9. PLAVIX [Concomitant]
     Dosage: 75 MG, 1X/DAY
  10. CARVEDILOL [Concomitant]
     Dosage: 12.5 MG, 2X/DAY
  11. METFORMIN [Concomitant]
     Dosage: 500 MG, 2X/DAY
  12. GLYBURIDE [Concomitant]
     Dosage: 5 MG, 1X/DAY

REACTIONS (3)
  - Death [Fatal]
  - Hypoglycaemia [Unknown]
  - Renal failure [Unknown]
